FAERS Safety Report 4332951-0 (Version None)
Quarter: 2004Q1

REPORT INFORMATION
  Report Type: 
  Country: None (occurrence: None)
  Receive Date: 20040330
  Receipt Date: 20040315
  Transmission Date: 20041129
  Serious: Yes (Death, Hospitalization)
  Sender: FDA-Public Use
  Company Number: 20040300241

PATIENT
  Age: 76 Year
  Sex: Male
  Weight: 82.8 kg

DRUGS (10)
  1. BREVIBLOC [Suspect]
     Indication: TACHYCARDIA
     Dosage: 250 ML DAILY IV
     Route: 042
     Dates: start: 20031001
  2. MORPHINE [Suspect]
     Indication: CHEST PAIN
     Dosage: 2 MG DAILY IV
     Route: 042
     Dates: start: 20031001
  3. ANGIOMAX [Suspect]
     Indication: ACUTE CORONARY SYNDROME
     Dosage: 0.1 MG DAILY IV
     Route: 042
     Dates: start: 20030930, end: 20030930
  4. ANGIOMAX [Suspect]
     Indication: ACUTE CORONARY SYNDROME
     Dosage: 0.5 MGKG DAILY IV
     Route: 042
     Dates: start: 20030930, end: 20030930
  5. ANGIOMAX [Suspect]
     Indication: ACUTE CORONARY SYNDROME
     Dosage: 0.25 OTHER DAILY IV
     Route: 042
     Dates: start: 20030930, end: 20030930
  6. LORAZEPAM [Concomitant]
  7. NITROGLYCERIN [Concomitant]
  8. HALOPERIDOL [Concomitant]
  9. THIAMINE [Concomitant]
  10. PIPERACILLIN SODIUM W/TAZOBACTAM SODIUM [Concomitant]

REACTIONS (16)
  - AGITATION [None]
  - ALCOHOL WITHDRAWAL SYNDROME [None]
  - ASPIRATION [None]
  - BRADYCARDIA [None]
  - CARDIAC PROCEDURE COMPLICATION [None]
  - CONFUSIONAL STATE [None]
  - DISORIENTATION [None]
  - DRUG EFFECT DECREASED [None]
  - ELECTROMECHANICAL DISSOCIATION [None]
  - HYPOTENSION [None]
  - INJECTION SITE HAEMORRHAGE [None]
  - MYOCARDIAL INFARCTION [None]
  - RESPIRATORY ACIDOSIS [None]
  - RESPIRATORY FAILURE [None]
  - VENTRICULAR FIBRILLATION [None]
  - VENTRICULAR TACHYCARDIA [None]
